FAERS Safety Report 23689613 (Version 1)
Quarter: 2024Q1

REPORT INFORMATION
  Report Type: Spontaneous
  Country: US (occurrence: US)
  Receive Date: 20240331
  Receipt Date: 20240331
  Transmission Date: 20240410
  Serious: No
  Sender: FDA-Public Use
  Company Number: US-TEVA-VS-3154110

PATIENT
  Sex: Female

DRUGS (1)
  1. LORAZEPAM [Suspect]
     Active Substance: LORAZEPAM
     Indication: Anxiety disorder
     Route: 065

REACTIONS (2)
  - Drug ineffective [Unknown]
  - Product physical issue [Unknown]
